FAERS Safety Report 6119164-7 (Version None)
Quarter: 2009Q1

REPORT INFORMATION
  Report Type: 
  Country: None (occurrence: None)
  Receive Date: 20090316
  Receipt Date: 20090302
  Transmission Date: 20090719
  Serious: Yes (Other)
  Sender: FDA-Public Use
  Company Number: US-ROCHE-614039

PATIENT
  Sex: Male
  Weight: 77.5 kg

DRUGS (6)
  1. PEG-INTERFERON A-2A (RO 25-8310) [Suspect]
     Indication: HEPATITIS C
     Route: 058
     Dates: start: 20081209, end: 20090114
  2. RIBAVIRIN [Suspect]
     Indication: HEPATITIS C
     Route: 048
     Dates: start: 20081209, end: 20090114
  3. KLONOPIN [Concomitant]
     Route: 048
  4. ZOLOFT [Concomitant]
     Indication: DEPRESSION
     Dosage: EVERY DAY
     Route: 048
     Dates: start: 20090210
  5. ATIVAN [Concomitant]
     Route: 048
     Dates: start: 20090116
  6. TRAZODONE HCL [Concomitant]
     Indication: SOMNOLENCE
     Dosage: ONCE EVERY NIGHT (Q HS)
     Route: 048

REACTIONS (5)
  - AMNESIA [None]
  - CONFUSIONAL STATE [None]
  - COORDINATION ABNORMAL [None]
  - DEMENTIA [None]
  - FATIGUE [None]
